FAERS Safety Report 8310002-0 (Version None)
Quarter: 2012Q2

REPORT INFORMATION
  Report Type: 
  Country: None (occurrence: None)
  Receive Date: 20120425
  Receipt Date: 20120419
  Transmission Date: 20120825
  Serious: Yes (Hospitalization)
  Sender: FDA-Public Use
  Company Number: BR-SANOFI-AVENTIS-2012SA027736

PATIENT
  Sex: Female

DRUGS (2)
  1. LANTUS [Suspect]
     Route: 064
     Dates: start: 20110101, end: 20110601
  2. SOLOSTAR [Suspect]
     Indication: DEVICE THERAPY
     Dates: start: 20110101, end: 20110601

REACTIONS (3)
  - FOETAL EXPOSURE DURING PREGNANCY [None]
  - TEMPERATURE REGULATION DISORDER [None]
  - PREMATURE BABY [None]
